FAERS Safety Report 6646218-9 (Version None)
Quarter: 2010Q1

REPORT INFORMATION
  Report Type: 
  Country: None (occurrence: None)
  Receive Date: 20100322
  Receipt Date: 20100322
  Transmission Date: 20100710
  Serious: Yes (Life-Threatening, Hospitalization)
  Sender: FDA-Public Use
  Company Number: None

PATIENT
  Age: 36 Year
  Sex: Female
  Weight: 63.5036 kg

DRUGS (2)
  1. SEROQUEL XR [Suspect]
     Indication: INITIAL INSOMNIA
     Dosage: SEROQUEL XR 50MG PO, ONCE
     Route: 048
     Dates: start: 20100304
  2. SEROQUEL XR [Suspect]
     Indication: INSOMNIA
     Dosage: SEROQUEL XR 50MG PO, ONCE
     Route: 048
     Dates: start: 20100304

REACTIONS (2)
  - CONVULSION [None]
  - MENTAL IMPAIRMENT [None]
